FAERS Safety Report 5211523-X (Version None)
Quarter: 2007Q1

REPORT INFORMATION
  Report Type: 
  Country: None (occurrence: None)
  Receive Date: 20070116
  Receipt Date: 20061227
  Transmission Date: 20070707
  Serious: Yes (Hospitalization)
  Sender: FDA-Public Use
  Company Number: JPI-P-000237

PATIENT
  Sex: Male

DRUGS (1)
  1. XYREM [Suspect]
     Indication: DRUG USE FOR UNKNOWN INDICATION
     Dosage: 6 MG (3 GM, 2 IN 1 D) ORAL
     Route: 048

REACTIONS (5)
  - HYPOKALAEMIA [None]
  - MOVEMENT DISORDER [None]
  - MUSCULAR WEAKNESS [None]
  - NAUSEA [None]
  - VOMITING [None]
